FAERS Safety Report 9231113 (Version 1)
Quarter: 2013Q2

REPORT INFORMATION
  Report Type: Spontaneous
  Country: BR (occurrence: BR)
  Receive Date: 20130415
  Receipt Date: 20130415
  Transmission Date: 20140414
  Serious: Yes (Other)
  Sender: FDA-Public Use
  Company Number: BR-NOVOPROD-375112

PATIENT
  Sex: Male
  Weight: 90 kg

DRUGS (10)
  1. NOVOLIN N [Suspect]
     Indication: TYPE 2 DIABETES MELLITUS
     Dosage: 80 IU, QD
     Route: 058
     Dates: start: 2006
  2. NOVOLIN N [Suspect]
     Dosage: 64 IU, QD
     Route: 058
  3. DIOVAN [Concomitant]
     Indication: HYPERTENSION
     Dosage: 80MG, 1 TAB, QD
     Route: 048
     Dates: start: 2006
  4. FLUOXETINE [Concomitant]
     Indication: DEPRESSION
     Dosage: 20 MG, 4 TAB, QD
     Dates: start: 2006
  5. LIPTOR [Concomitant]
     Indication: BLOOD CHOLESTEROL ABNORMAL
     Dosage: 20 MG, 1 TAB, QD
     Route: 048
     Dates: start: 2006
  6. CARVEDILOL [Concomitant]
     Indication: CARDIAC DISORDER
     Dosage: 2.5 MG, 2 TAB, QD
     Route: 048
     Dates: start: 2002
  7. EUTIROX [Concomitant]
     Indication: THYROID DISORDER
     Dosage: 1 TAB, QD
     Route: 048
  8. CLOPIDOGREL [Concomitant]
     Indication: CARDIAC DISORDER
     Dosage: 75 MG, 1 TAB, UNK
     Route: 048
     Dates: start: 2011
  9. MONOCORDIL [Concomitant]
     Indication: CARDIAC DISORDER
     Dosage: 20 MG, 2 TAB, UNK
     Route: 048
     Dates: start: 2006
  10. VASOGARD [Concomitant]
     Dosage: 1 TAB, UNK
     Route: 048
     Dates: start: 2006

REACTIONS (3)
  - Fall [Recovered/Resolved]
  - Blood glucose increased [Unknown]
  - Hypoglycaemia [Unknown]
